FAERS Safety Report 10230072 (Version 1)
Quarter: 2014Q2

REPORT INFORMATION
  Report Type: Spontaneous
  Country: US (occurrence: None)
  Receive Date: 20140610
  Receipt Date: 20140610
  Transmission Date: 20141212
  Serious: No
  Sender: FDA-Public Use
  Company Number: None

PATIENT
  Age: 29 Year
  Sex: Female

DRUGS (1)
  1. MIRVASO [Suspect]
     Indication: ROSACEA

REACTIONS (3)
  - Erythema [None]
  - Condition aggravated [None]
  - Drug ineffective [None]
